FAERS Safety Report 9401858 (Version 2)
Quarter: 2013Q3

REPORT INFORMATION
  Report Type: Spontaneous
  Country: MX (occurrence: MX)
  Receive Date: 20130716
  Receipt Date: 20130724
  Transmission Date: 20140515
  Serious: Yes (Other)
  Sender: FDA-Public Use
  Company Number: MX-GENZYME-THYM-1003915

PATIENT
  Age: 41 Year
  Sex: Female

DRUGS (2)
  1. THYMOGLOBULINE [Suspect]
     Indication: PROPHYLAXIS AGAINST GRAFT VERSUS HOST DISEASE
     Dosage: 3.5 MG/KG, QD
     Route: 042
     Dates: start: 20120221, end: 20120223
  2. DIPHENYLHYDANTOIN [Concomitant]
     Indication: CONVULSION PROPHYLAXIS
     Dosage: UNK
     Route: 065
     Dates: start: 20120222

REACTIONS (1)
  - Convulsion [Recovered/Resolved]
